FAERS Safety Report 10389812 (Version 1)
Quarter: 2014Q3

REPORT INFORMATION
  Report Type: Spontaneous
  Country: US (occurrence: None)
  Receive Date: 20140813
  Receipt Date: 20140813
  Transmission Date: 20150326
  Serious: Yes (Hospitalization)
  Sender: FDA-Public Use
  Company Number: VAL_03259_2014

PATIENT
  Age: 82 Year
  Sex: Female

DRUGS (3)
  1. DIGOXIN. [Suspect]
     Active Substance: DIGOXIN
     Indication: ATRIAL FIBRILLATION
  2. METOPROLOL TARTRATE. [Suspect]
     Active Substance: METOPROLOL TARTRATE
     Indication: ATRIAL FIBRILLATION
     Dosage: DF
  3. DRONEDARONE [Suspect]
     Active Substance: DRONEDARONE
     Indication: ATRIAL FIBRILLATION
     Dosage: DF

REACTIONS (8)
  - Dizziness [None]
  - Hypomagnesaemia [None]
  - Toxicity to various agents [None]
  - Drug interaction [None]
  - Nodal arrhythmia [None]
  - Atrial fibrillation [None]
  - Blood potassium increased [None]
  - Cardioactive drug level increased [None]
